FAERS Safety Report 8579369-2 (Version None)
Quarter: 2012Q3

REPORT INFORMATION
  Report Type: 
  Country: None (occurrence: None)
  Receive Date: 20120808
  Receipt Date: 20120730
  Transmission Date: 20120928
  Serious: No
  Sender: FDA-Public Use
  Company Number: US-ASTRAZENECA-2012SE54125

PATIENT
  Sex: Female

DRUGS (1)
  1. PULMICORT FLEXHALER [Suspect]
     Dosage: TWO PUFFS TWICE DAILY
     Route: 055

REACTIONS (2)
  - DRUG DOSE OMISSION [None]
  - GENERAL SYMPTOM [None]
